FAERS Safety Report 9512196 (Version 1)
Quarter: 2013Q1

REPORT INFORMATION
  Report Type: Spontaneous
  Country: US (occurrence: None)
  Receive Date: 20130305
  Receipt Date: 20130305
  Transmission Date: 20140127
  Serious: Yes (Hospitalization)
  Sender: FDA-Public Use
  Company Number: 163-21880-12051552

PATIENT
  Age: 79 Year
  Sex: Female
  Weight: 63.05 kg

DRUGS (9)
  1. REVLIMID (LENALIDOMIDE) (25 MILLIGRAM, CAPSULES) [Suspect]
     Indication: PLASMA CELL MYELOMA
     Route: 048
     Dates: start: 20120419, end: 20120509
  2. DEXAMETHASONE (DEXAMETHASONE) [Concomitant]
  3. ASA (ACETYLSALICYLIC ACID) [Concomitant]
  4. ACYCLOVIR (ACICLOVIR) (ACICLOVIR) [Concomitant]
  5. CARDIZEM (DILTIAZEM HYDROCHLORIDE) [Concomitant]
  6. OMEGA 3 FISH OIL (FISH OIL) [Concomitant]
  7. FUROSEMIDE (FUROSEMIDE) [Concomitant]
  8. GABAPENTIN (GABAPENTIN) [Concomitant]
  9. METOPROLOL (METOPROLOL) [Concomitant]

REACTIONS (1)
  - Muscle spasms [None]
